FAERS Safety Report 6699109-1 (Version None)
Quarter: 2010Q2

REPORT INFORMATION
  Report Type: 
  Country: None (occurrence: None)
  Receive Date: 20100423
  Receipt Date: 20100408
  Transmission Date: 20101027
  Serious: Yes (Disabling)
  Sender: FDA-Public Use
  Company Number: 007452

PATIENT
  Sex: Female
  Weight: 57 kg

DRUGS (3)
  1. KEPPRA [Suspect]
     Indication: EPILEPSY
     Dosage: 250 MG TID
     Dates: start: 20071201
  2. CARBAMAZEPINA (CARBAMAZAPINE) (NOT SPECIFIED) [Suspect]
     Indication: EPILEPSY
     Dosage: 200 MG BID
     Dates: start: 20080101
  3. LAMOTRIGINE [Concomitant]

REACTIONS (1)
  - DEAFNESS [None]
